FAERS Safety Report 6297230-3 (Version None)
Quarter: 2009Q3

REPORT INFORMATION
  Report Type: 
  Country: None (occurrence: None)
  Receive Date: 20090805
  Receipt Date: 20070521
  Transmission Date: 20100115
  Serious: Yes (Other)
  Sender: FDA-Public Use
  Company Number: US-ASTRAZENECA-2006UW11830

PATIENT
  Age: 19838 Day
  Sex: Female
  Weight: 79.4 kg

DRUGS (33)
  1. SEROQUEL [Suspect]
     Indication: DEPRESSION
     Route: 048
     Dates: start: 20040101, end: 20060801
  2. SEROQUEL [Suspect]
     Indication: SLEEP DISORDER
     Route: 048
     Dates: start: 20040101, end: 20060801
  3. SEROQUEL [Suspect]
     Dosage: STRENGTH: 25 MG, 100 MG. DOSE: 25 MG - 100 MG DAILY
     Route: 048
     Dates: start: 20050128
  4. SEROQUEL [Suspect]
     Dosage: STRENGTH: 25 MG, 100 MG. DOSE: 25 MG - 100 MG DAILY
     Route: 048
     Dates: start: 20050128
  5. XANAX [Concomitant]
  6. XANAX [Concomitant]
     Dates: start: 20030911
  7. LEXAPRO [Concomitant]
  8. PROVENTIL-HFA [Concomitant]
     Dosage: 90 MCG AS DIRECTED BY PHYSICIAN, 1 UNIT DOSE TID
     Dates: start: 20030807
  9. ZOCOR [Concomitant]
     Route: 048
     Dates: start: 20060728
  10. ADVAIR DISKUS 250/50 [Concomitant]
     Indication: CHRONIC OBSTRUCTIVE PULMONARY DISEASE
     Dosage: 1 PUFF BID
     Dates: start: 20031022
  11. ATIVAN [Concomitant]
     Route: 048
     Dates: start: 20030925
  12. WELLBUTRIN [Concomitant]
     Route: 048
     Dates: start: 20030925
  13. ULTRAM [Concomitant]
     Indication: PAIN
     Dosage: 1 - 2 QID, PRN
     Route: 048
     Dates: start: 20040223
  14. COMBIVENT [Concomitant]
     Dosage: 103 - 81 MCQ AS NEEDED, 2 PUFFS QID
     Dates: start: 20031022
  15. REMERON [Concomitant]
     Route: 048
     Dates: start: 20030911
  16. ATARAX [Concomitant]
  17. CARTIA XT [Concomitant]
     Indication: BLOOD PRESSURE
     Dosage: 120 - 240 MG PER DAY, UNKNOWN DOSE ONCE DAILY
  18. ZETIA [Concomitant]
     Indication: BLOOD CHOLESTEROL
     Dates: start: 20051018
  19. DEPO-MEDROL [Concomitant]
     Route: 030
     Dates: start: 20031224
  20. SOLU-MEDROL [Concomitant]
     Route: 040
     Dates: start: 20050919
  21. PROZAC [Concomitant]
     Dates: start: 20050128
  22. LYRICA [Concomitant]
     Dates: start: 20070124
  23. TYLENOL (CAPLET) [Concomitant]
     Indication: MUSCULOSKELETAL PAIN
     Dates: start: 20031113
  24. TYLENOL (CAPLET) [Concomitant]
     Indication: PYREXIA
     Dates: start: 20031113
  25. TYLENOL (CAPLET) [Concomitant]
     Indication: HEADACHE
     Dates: start: 20031113
  26. ASPIRIN [Concomitant]
     Dates: start: 20060317
  27. LISINOPRIL [Concomitant]
     Dosage: 10 - 20 MG DAILY
     Route: 048
     Dates: start: 20060926
  28. KLONOPIN [Concomitant]
     Route: 048
     Dates: start: 20030807
  29. VYTORIN [Concomitant]
     Indication: HYPERLIPIDAEMIA
     Dates: start: 20070108
  30. DOXAZOSIN MESYLATE [Concomitant]
     Dates: start: 20060926
  31. DETROL [Concomitant]
     Dates: start: 20050919
  32. NITRO/ NITRO PATCH/ NITRO DUR PATCH [Concomitant]
     Route: 062
     Dates: start: 20040924
  33. NITROGLYCERIN [Concomitant]
     Route: 060
     Dates: start: 20040924

REACTIONS (4)
  - DIABETES MELLITUS [None]
  - DIABETES MELLITUS INADEQUATE CONTROL [None]
  - DIABETIC NEUROPATHY [None]
  - TYPE 1 DIABETES MELLITUS [None]
